FAERS Safety Report 7284336-5 (Version None)
Quarter: 2011Q1

REPORT INFORMATION
  Report Type: 
  Country: None (occurrence: None)
  Receive Date: 20110209
  Receipt Date: 20110204
  Transmission Date: 20110831
  Serious: Yes (Hospitalization)
  Sender: FDA-Public Use
  Company Number: IT-PFIZER INC-2011026756

PATIENT
  Age: 3 Year
  Sex: Male

DRUGS (1)
  1. IBUPROFEN [Suspect]
     Indication: OROPHARYNGEAL PAIN
     Dosage: 22 ML, 1X/DAY
     Route: 048
     Dates: start: 20101110

REACTIONS (3)
  - PYLORIC STENOSIS [None]
  - GASTRIC ULCER [None]
  - GASTRITIS [None]
